FAERS Safety Report 20028034 (Version 2)
Quarter: 2021Q4

REPORT INFORMATION
  Report Type: Report from Study
  Country: US (occurrence: US)
  Receive Date: 20211103
  Receipt Date: 20211116
  Transmission Date: 20220303
  Serious: Yes (Other)
  Sender: FDA-Public Use
  Company Number: US-HBP-2021US023630

PATIENT
  Sex: Female

DRUGS (2)
  1. VALCHLOR [Suspect]
     Active Substance: MECHLORETHAMINE
     Indication: Cutaneous T-cell lymphoma
     Dosage: UNK, QD
     Route: 061
     Dates: start: 2021, end: 2021
  2. HALOBETASOL PROPIONATE [Concomitant]
     Active Substance: HALOBETASOL PROPIONATE
     Dosage: UNK, UNKNOWN

REACTIONS (5)
  - Leukaemia recurrent [Not Recovered/Not Resolved]
  - Application site pain [Recovered/Resolved]
  - Symptom recurrence [Unknown]
  - Drug ineffective [Unknown]
  - Rash [Unknown]
